FAERS Safety Report 22139127 (Version 2)
Quarter: 2023Q2

REPORT INFORMATION
  Report Type: Report from Study
  Country: US (occurrence: US)
  Receive Date: 20230327
  Receipt Date: 20230517
  Transmission Date: 20230721
  Serious: Yes (Other)
  Sender: FDA-Public Use
  Company Number: US-ABBVIE-4703475

PATIENT
  Sex: Male

DRUGS (2)
  1. HUMIRA [Suspect]
     Active Substance: ADALIMUMAB
     Indication: Rheumatoid arthritis
     Route: 058
     Dates: start: 20171120
  2. HUMIRA [Suspect]
     Active Substance: ADALIMUMAB
     Route: 058
     Dates: start: 20171120

REACTIONS (4)
  - Goitre [Recovering/Resolving]
  - Neck pain [Recovering/Resolving]
  - Parathyroid gland enlargement [Recovering/Resolving]
  - Musculoskeletal stiffness [Recovering/Resolving]
